FAERS Safety Report 13881917 (Version 1)
Quarter: 2017Q3

REPORT INFORMATION
  Report Type: Spontaneous
  Country: DE (occurrence: DE)
  Receive Date: 20170818
  Receipt Date: 20170818
  Transmission Date: 20171127
  Serious: Yes (Other)
  Sender: FDA-Public Use
  Company Number: DE-TORRENT-00006851

PATIENT
  Age: 21 Year
  Sex: Male

DRUGS (2)
  1. LEVETIRACETAM. [Suspect]
     Active Substance: LEVETIRACETAM
  2. LAMOTRIGINE. [Suspect]
     Active Substance: LAMOTRIGINE

REACTIONS (6)
  - Platelet count decreased [Not Recovered/Not Resolved]
  - Fear [Not Recovered/Not Resolved]
  - Fall [Unknown]
  - Head injury [Unknown]
  - Obsessive thoughts [Not Recovered/Not Resolved]
  - Seizure [Recovered/Resolved]
